FAERS Safety Report 8455391 (Version 2)
Quarter: 2012Q4

REPORT INFORMATION
  Report Type: 
  Country: US (occurrence: US)
  Receive Date: 20120313
  Receipt Date: 20121031
  Transmission Date: 20130627
  Serious: Yes (Other)
  Sender: FDA-Public Use
  Company Number: US-BAYER-2012-022328

PATIENT
  Age: 28 Year
  Sex: Female
  Weight: 68.03 kg

DRUGS (5)
  1. MIRENA [Suspect]
     Indication: CONTRACEPTION
     Dosage: 20 mcg/24hr, CONT
     Route: 015
     Dates: start: 20120209, end: 20120309
  2. CITALOPRAM [Concomitant]
     Dosage: 20 mg, UNK
  3. CLONIDINE [Concomitant]
     Dosage: 0.1 mg, UNK
  4. HYDROCHLOROTHIAZID [Concomitant]
     Dosage: 25 mg, UNK
  5. VITAMIN D2 [Concomitant]
     Dosage: UNK

REACTIONS (3)
  - Pregnancy with contraceptive device [None]
  - Complication of device removal [None]
  - Abortion spontaneous [None]
